FAERS Safety Report 12995838 (Version 3)
Quarter: 2017Q2

REPORT INFORMATION
  Report Type: Report from Study
  Country: US (occurrence: US)
  Receive Date: 20161202
  Receipt Date: 20170516
  Transmission Date: 20170830
  Serious: Yes (Death, Life-Threatening, Hospitalization, Other)
  Sender: FDA-Public Use
  Company Number: US-REGENERON PHARMACEUTICALS, INC.-2016-24558

PATIENT

DRUGS (2)
  1. EYLEA [Suspect]
     Active Substance: AFLIBERCEPT
     Indication: RETINAL VEIN OCCLUSION
     Dosage: UNK, LEFT EYE
     Route: 031
     Dates: start: 20161114
  2. EYLEA [Suspect]
     Active Substance: AFLIBERCEPT
     Indication: GLAUCOMA

REACTIONS (5)
  - Cardiac disorder [Unknown]
  - Weight decreased [Unknown]
  - Death [Fatal]
  - Cardiac arrest [Unknown]
  - Product use in unapproved indication [Unknown]

NARRATIVE: CASE EVENT DATE: 20161114
